FAERS Safety Report 15317935 (Version 1)
Quarter: 2018Q3

REPORT INFORMATION
  Report Type: Spontaneous
  Country: US (occurrence: US)
  Receive Date: 20180817
  Receipt Date: 20180817
  Transmission Date: 20181010
  Serious: Yes (Other)
  Sender: FDA-Public Use
  Company Number: None

PATIENT
  Age: 51 Year
  Sex: Male
  Weight: 96.75 kg

DRUGS (1)
  1. CLENPIQ [Suspect]
     Active Substance: ANHYDROUS CITRIC ACID\MAGNESIUM OXIDE\SODIUM PICOSULFATE
     Indication: COLONOSCOPY
     Dosage: ?          QUANTITY:2 BOTTLES;OTHER FREQUENCY:TWO DOSES;?
     Route: 048
     Dates: start: 20180815, end: 20180815

REACTIONS (3)
  - Headache [None]
  - Photophobia [None]
  - Nausea [None]

NARRATIVE: CASE EVENT DATE: 20180815
